FAERS Safety Report 25568634 (Version 1)
Quarter: 2025Q3

REPORT INFORMATION
  Report Type: Spontaneous
  Country: US (occurrence: US)
  Receive Date: 20250716
  Receipt Date: 20250716
  Transmission Date: 20251021
  Serious: No
  Sender: ABBVIE
  Company Number: US-ABBVIE-6371211

PATIENT
  Sex: Male

DRUGS (1)
  1. SKYRIZI [Suspect]
     Active Substance: RISANKIZUMAB-RZAA
     Indication: Inflammatory bowel disease
     Route: 042
     Dates: start: 202506

REACTIONS (2)
  - Oedema peripheral [Unknown]
  - Swelling [Unknown]

NARRATIVE: CASE EVENT DATE: 20250101
